FAERS Safety Report 18160403 (Version 1)
Quarter: 2020Q3

REPORT INFORMATION
  Report Type: Spontaneous
  Country: US (occurrence: US)
  Receive Date: 20200818
  Receipt Date: 20200818
  Transmission Date: 20201103
  Serious: Yes (Hospitalization, Disabling, Other)
  Sender: FDA-Public Use
  Company Number: US-PURDUE-USA-2020-0161429

PATIENT
  Sex: Male

DRUGS (6)
  1. OXYCODONE HYDROCHLORIDE (SIMILAR TO NDA 22?272) [Suspect]
     Active Substance: OXYCODONE HYDROCHLORIDE
     Dosage: UNK
     Route: 048
     Dates: start: 20100325
  2. OXYCONTIN [Suspect]
     Active Substance: OXYCODONE HYDROCHLORIDE
     Indication: PRODUCT USED FOR UNKNOWN INDICATION
     Dosage: UNK
     Route: 048
     Dates: start: 20100302
  3. MORPHINE SULFATE (SIMILAR TO NDA 19?516) [Suspect]
     Active Substance: MORPHINE SULFATE
     Indication: PRODUCT USED FOR UNKNOWN INDICATION
     Route: 048
  4. OXYCODONE HYDROCHLORIDE (SIMILAR TO NDA 22?272) [Suspect]
     Active Substance: OXYCODONE HYDROCHLORIDE
     Indication: PRODUCT USED FOR UNKNOWN INDICATION
     Dosage: 30 MG, UNK
     Route: 048
     Dates: start: 20100301
  5. DILAUDID HP [Suspect]
     Active Substance: HYDROMORPHONE HYDROCHLORIDE
     Indication: PRODUCT USED FOR UNKNOWN INDICATION
     Dosage: UNK
     Route: 051
  6. HEROIN [Suspect]
     Active Substance: DIAMORPHINE
     Indication: PRODUCT USED FOR UNKNOWN INDICATION
     Dosage: UNK
     Route: 065

REACTIONS (22)
  - Shock [Unknown]
  - Walking disability [Unknown]
  - Road traffic accident [Unknown]
  - Altered state of consciousness [Unknown]
  - Impaired quality of life [Unknown]
  - Drug dependence [Unknown]
  - Unevaluable event [Unknown]
  - Sitting disability [Unknown]
  - Overdose [Unknown]
  - Bedridden [Unknown]
  - Imprisonment [Unknown]
  - Sepsis [Unknown]
  - Loss of personal independence in daily activities [Unknown]
  - Shoulder operation [Unknown]
  - Brain injury [Unknown]
  - Muscle atrophy [Unknown]
  - Coma [Unknown]
  - Hospitalisation [Unknown]
  - Loss of consciousness [Unknown]
  - Arm amputation [Unknown]
  - Lethargy [Unknown]
  - Hypersomnia [Unknown]

NARRATIVE: CASE EVENT DATE: 2010
